FAERS Safety Report 6013296-X (Version None)
Quarter: 2008Q4

REPORT INFORMATION
  Report Type: 
  Country: None (occurrence: None)
  Receive Date: 20081219
  Receipt Date: 20080925
  Transmission Date: 20090506
  Serious: Yes (Disabling, Other)
  Sender: FDA-Public Use
  Company Number: PHHY2008JP32006

PATIENT
  Sex: Female

DRUGS (5)
  1. ZOMETA [Suspect]
     Indication: METASTASES TO BONE
     Dosage: 4 MG, QMO
     Route: 042
     Dates: start: 20060616, end: 20080529
  2. ARIMIDEX [Suspect]
     Indication: BREAST CANCER
     Dosage: 1 MG DAILY
     Route: 048
     Dates: start: 20060617, end: 20070118
  3. HYSRON [Concomitant]
     Indication: BREAST CANCER
     Dosage: 600 MG
     Route: 048
     Dates: start: 20080724, end: 20081009
  4. NOLVADEX [Concomitant]
     Indication: BREAST CANCER
     Dosage: 20 MG
     Route: 048
     Dates: start: 20080724, end: 20081009
  5. HERCEPTIN [Concomitant]
     Indication: BREAST CANCER
     Dosage: 120MG
     Dates: start: 20081017, end: 20081113

REACTIONS (6)
  - ARTHRALGIA [None]
  - GINGIVAL SWELLING [None]
  - GINGIVITIS [None]
  - OSTEONECROSIS [None]
  - PURULENT DISCHARGE [None]
  - TOOTH LOSS [None]
